FAERS Safety Report 25822930 (Version 1)
Quarter: 2025Q3

REPORT INFORMATION
  Report Type: Spontaneous
  Country: US (occurrence: US)
  Receive Date: 20250919
  Receipt Date: 20250919
  Transmission Date: 20251021
  Serious: Yes (Other)
  Sender: SUNNY PHARMTECH INC.
  Company Number: US-Sunny Pharmtech Inc.-000041

PATIENT
  Age: 62 Year
  Sex: Female

DRUGS (1)
  1. CYCLOPHOSPHAMIDE [Suspect]
     Active Substance: CYCLOPHOSPHAMIDE
     Indication: Neurosarcoidosis

REACTIONS (2)
  - Fanconi syndrome acquired [Unknown]
  - Off label use [Unknown]
